FAERS Safety Report 22176615 (Version 1)
Quarter: 2023Q2

REPORT INFORMATION
  Report Type: Spontaneous
  Country: US (occurrence: None)
  Receive Date: 20230404
  Receipt Date: 20230404
  Transmission Date: 20230721
  Serious: Yes (Hospitalization, Disabling)
  Sender: FDA-Public Use
  Company Number: None

PATIENT
  Age: 45 Year
  Sex: Female
  Weight: 110.25 kg

DRUGS (2)
  1. OMEPRAZOLE [Suspect]
     Active Substance: OMEPRAZOLE
     Indication: Gastrooesophageal reflux disease
     Dosage: 28 CAPSULES DAILY ORAL
     Route: 048
     Dates: start: 20230329, end: 20230330
  2. IBUPROFEN [Concomitant]
     Active Substance: IBUPROFEN

REACTIONS (5)
  - Cholelithiasis [None]
  - Injury [None]
  - Jaundice [None]
  - Liver function test increased [None]
  - Pruritus [None]

NARRATIVE: CASE EVENT DATE: 20230329
